FAERS Safety Report 6203778-X (Version None)
Quarter: 2009Q2

REPORT INFORMATION
  Report Type: 
  Country: None (occurrence: None)
  Receive Date: 20090527
  Receipt Date: 20090518
  Transmission Date: 20091009
  Serious: No
  Sender: FDA-Public Use
  Company Number: JP-ELI_LILLY_AND_COMPANY-JP200905003938

PATIENT
  Age: 77 Year
  Sex: Male

DRUGS (1)
  1. ZYPREXA [Suspect]
     Dosage: 1.25 MG, DAILY (1/D) (HALF A 2.5 MG TABLET)
     Route: 048
     Dates: start: 20090205

REACTIONS (1)
  - PLATELET COUNT DECREASED [None]
